FAERS Safety Report 24829659 (Version 1)
Quarter: 2025Q1

REPORT INFORMATION
  Report Type: Spontaneous
  Country: US (occurrence: US)
  Receive Date: 20250110
  Receipt Date: 20250110
  Transmission Date: 20250408
  Serious: Yes (Hospitalization, Other)
  Sender: GRAVITI PHARMACEUTICALS PRIVATE LIMITED
  Company Number: US-GRAVITIPHARMA-GRA-2501-US-LIT-0003

PATIENT
  Age: 26 Year
  Sex: Female

DRUGS (1)
  1. BUPROPION HYDROCHLORIDE [Suspect]
     Active Substance: BUPROPION HYDROCHLORIDE
     Indication: Product used for unknown indication
     Route: 065

REACTIONS (8)
  - Tachycardia [Recovered/Resolved]
  - Tachypnoea [Recovered/Resolved]
  - Mental status changes [Recovered/Resolved]
  - Automatism [Recovered/Resolved]
  - Nystagmus [Recovered/Resolved]
  - Electrocardiogram QT prolonged [Recovered/Resolved]
  - Intestinal ischaemia [Recovered/Resolved]
  - Overdose [Recovered/Resolved]
